FAERS Safety Report 4664050-2 (Version None)
Quarter: 2005Q2

REPORT INFORMATION
  Report Type: 
  Country: None (occurrence: None)
  Receive Date: 20050516
  Receipt Date: 20050504
  Transmission Date: 20051028
  Serious: Yes (Other)
  Sender: FDA-Public Use
  Company Number: 05-000003

PATIENT
  Age: 56 Year
  Sex: Female
  Weight: 59 kg

DRUGS (4)
  1. FEMHRT [Suspect]
     Dosage: 5/1000UG, ORAL
     Route: 048
     Dates: start: 20020101, end: 20041216
  2. ZESTRIL [Concomitant]
  3. FOSAMAX [Concomitant]
  4. CALCIUM (CALCIUM) [Concomitant]

REACTIONS (10)
  - ANTIBODY TEST POSITIVE [None]
  - ATELECTASIS [None]
  - BLOOD CALCIUM INCREASED [None]
  - BRAIN SCAN ABNORMAL [None]
  - HEADACHE [None]
  - HEPATITIS B ANTIBODY ABNORMAL [None]
  - MITRAL VALVE DISEASE [None]
  - PULMONARY HYPERTENSION [None]
  - SCAR [None]
  - VENTRICULAR EXTRASYSTOLES [None]
